FAERS Safety Report 12786156 (Version 1)
Quarter: 2016Q3

REPORT INFORMATION
  Report Type: Spontaneous
  Country: US (occurrence: US)
  Receive Date: 20160927
  Receipt Date: 20160927
  Transmission Date: 20161109
  Serious: No
  Sender: FDA-Public Use
  Company Number: US-FRI-1000085199

PATIENT
  Sex: Female

DRUGS (4)
  1. VITAMIN FOR EYES [Concomitant]
     Dosage: UNK
  2. CHONDROITIN [Concomitant]
     Active Substance: CHONDROITIN
     Dosage: UNK
  3. FISH OIL [Concomitant]
     Active Substance: FISH OIL
     Dosage: UNK
  4. LINZESS [Suspect]
     Active Substance: LINACLOTIDE
     Indication: IRRITABLE BOWEL SYNDROME
     Dosage: 290 ?G, QD
     Route: 048
     Dates: start: 20160601

REACTIONS (3)
  - Gastric dilatation [Unknown]
  - Intentional product misuse [Unknown]
  - Diarrhoea [Unknown]

NARRATIVE: CASE EVENT DATE: 20160601
